FAERS Safety Report 10553283 (Version 2)
Quarter: 2014Q4

REPORT INFORMATION
  Report Type: Report from Study
  Country: BR (occurrence: BR)
  Receive Date: 20141030
  Receipt Date: 20141030
  Transmission Date: 20150529
  Serious: Yes (Hospitalization)
  Sender: FDA-Public Use
  Company Number: BR-BIOGENIDEC-2013BI106531

PATIENT
  Age: 57 Year
  Sex: Female

DRUGS (4)
  1. AVONEX [Suspect]
     Active Substance: INTERFERON BETA-1A
     Indication: MULTIPLE SCLEROSIS
     Route: 030
     Dates: start: 20130328
  2. ATACAND HCT [Concomitant]
     Active Substance: CANDESARTAN CILEXETIL\HYDROCHLOROTHIAZIDE
     Indication: HYPERTENSION
  3. AVONEX [Suspect]
     Active Substance: INTERFERON BETA-1A
     Indication: MULTIPLE SCLEROSIS
     Route: 030
     Dates: start: 20110110, end: 20130321
  4. LIPITOR [Concomitant]
     Active Substance: ATORVASTATIN CALCIUM

REACTIONS (19)
  - Balance disorder [Not Recovered/Not Resolved]
  - Urinary incontinence [Recovered/Resolved]
  - Anxiety [Unknown]
  - Spinal column stenosis [Recovered/Resolved]
  - Gait disturbance [Unknown]
  - Syncope [Unknown]
  - Haemorrhage [Recovered/Resolved]
  - Tremor [Unknown]
  - Abasia [Unknown]
  - Abdominal pain upper [Unknown]
  - Influenza like illness [Recovered/Resolved]
  - Pyrexia [Unknown]
  - Musculoskeletal disorder [Not Recovered/Not Resolved]
  - Headache [Unknown]
  - Chills [Unknown]
  - Musculoskeletal stiffness [Unknown]
  - Hypercholesterolaemia [Unknown]
  - Sensory loss [Not Recovered/Not Resolved]
  - Pain [Unknown]

NARRATIVE: CASE EVENT DATE: 20110110
